FAERS Safety Report 8531498-5 (Version None)
Quarter: 2012Q3

REPORT INFORMATION
  Report Type: 
  Country: None (occurrence: None)
  Receive Date: 20120723
  Receipt Date: 20120709
  Transmission Date: 20120928
  Serious: No
  Sender: FDA-Public Use
  Company Number: US-ASTRAZENECA-2012SE47193

PATIENT
  Age: 44 Year
  Sex: Female

DRUGS (2)
  1. RHINOCORT [Suspect]
     Route: 045
  2. NEXIUM [Suspect]
     Route: 048

REACTIONS (2)
  - URINARY TRACT INFECTION [None]
  - DYSPNOEA [None]
